FAERS Safety Report 7387513-8 (Version None)
Quarter: 2011Q1

REPORT INFORMATION
  Report Type: 
  Country: None (occurrence: None)
  Receive Date: 20110331
  Receipt Date: 20110304
  Transmission Date: 20110831
  Serious: No
  Sender: FDA-Public Use
  Company Number: US-B.I. PHARMACEUTICALS,INC./RIDGEFIELD-2011-BP-06854BP

PATIENT
  Sex: Female

DRUGS (4)
  1. PRADAXA [Suspect]
     Indication: ATRIAL FIBRILLATION
     Dosage: 300 MG
     Route: 048
     Dates: start: 20110226
  2. CITRACAL [Concomitant]
  3. HYDRALAZINE HCL [Concomitant]
     Indication: HYPERTENSION
     Dosage: 100 MG
  4. METOPROLOL [Concomitant]
     Indication: HYPERTENSION
     Dosage: 450 MG

REACTIONS (3)
  - FREQUENT BOWEL MOVEMENTS [None]
  - HAEMATOCHEZIA [None]
  - ANORECTAL DISCOMFORT [None]
